FAERS Safety Report 16328178 (Version 1)
Quarter: 2019Q2

REPORT INFORMATION
  Report Type: Spontaneous
  Country: AR (occurrence: AR)
  Receive Date: 20190518
  Receipt Date: 20190518
  Transmission Date: 20190711
  Serious: Yes (Other)
  Sender: FDA-Public Use
  Company Number: AR-009507513-1905ARG004845

PATIENT
  Age: 24 Year
  Sex: Female

DRUGS (1)
  1. IMPLANON [Suspect]
     Active Substance: ETONOGESTREL
     Dosage: 1 DOSAGE FORM
     Route: 059
     Dates: start: 20170616

REACTIONS (4)
  - Surgery [Unknown]
  - Necrotising soft tissue infection [Unknown]
  - General anaesthesia [Unknown]
  - Implant site pain [Unknown]

NARRATIVE: CASE EVENT DATE: 20170623
